FAERS Safety Report 9282768 (Version 1)
Quarter: 2013Q2

REPORT INFORMATION
  Report Type: Report from Study
  Country: US (occurrence: US)
  Receive Date: 20130510
  Receipt Date: 20130510
  Transmission Date: 20140414
  Serious: Yes (Death, Other)
  Sender: FDA-Public Use
  Company Number: PHEH2013US010158

PATIENT
  Age: 75 Year
  Sex: Female

DRUGS (2)
  1. RECLAST [Suspect]
     Dosage: UNK
     Route: 042
     Dates: start: 20120329
  2. PREDNISONE [Concomitant]
     Dosage: 40 MG, UNK

REACTIONS (22)
  - Multi-organ failure [Fatal]
  - Cardiogenic shock [Fatal]
  - Congestive cardiomyopathy [Fatal]
  - Cardiac valve disease [Fatal]
  - Diabetes mellitus [Fatal]
  - Cor pulmonale [Fatal]
  - Renal failure acute [Fatal]
  - Renal failure [Fatal]
  - Metabolic acidosis [Unknown]
  - Blood pH decreased [Unknown]
  - Carbon dioxide decreased [Unknown]
  - Mental disorder [Unknown]
  - Confusional state [Unknown]
  - Immunodeficiency [Unknown]
  - Renal failure chronic [Unknown]
  - Blood creatinine increased [Unknown]
  - Blood urea increased [Unknown]
  - Blood bicarbonate decreased [Unknown]
  - Mixed connective tissue disease [Unknown]
  - Infection [Unknown]
  - International normalised ratio decreased [Unknown]
  - Haematocrit decreased [Unknown]
